FAERS Safety Report 7921064-4 (Version None)
Quarter: 2011Q4

REPORT INFORMATION
  Report Type: 
  Country: None (occurrence: None)
  Receive Date: 20111117
  Receipt Date: 20111109
  Transmission Date: 20120403
  Serious: Yes (Hospitalization, Disabling, Other)
  Sender: FDA-Public Use
  Company Number: US-MERCK-1108USA01581

PATIENT
  Age: 50 Year
  Sex: Female
  Weight: 79 kg

DRUGS (1)
  1. FOSAMAX [Suspect]
     Indication: OSTEOPOROSIS
     Route: 048
     Dates: start: 19960101, end: 20091001

REACTIONS (51)
  - ANAEMIA POSTOPERATIVE [None]
  - CULTURE URINE POSITIVE [None]
  - FALL [None]
  - FATIGUE [None]
  - DIVERTICULUM [None]
  - PERIODONTITIS [None]
  - MITRAL VALVE INCOMPETENCE [None]
  - SPINAL COMPRESSION FRACTURE [None]
  - CARDIAC MURMUR [None]
  - DIZZINESS [None]
  - GAIT DISTURBANCE [None]
  - PALPITATIONS [None]
  - MENISCUS LESION [None]
  - TOOTH DISORDER [None]
  - ARTHRALGIA [None]
  - ADVERSE DRUG REACTION [None]
  - SPINAL FRACTURE [None]
  - BREAST PAIN [None]
  - CHEST PAIN [None]
  - GASTROINTESTINAL DISORDER [None]
  - OSTEOARTHRITIS [None]
  - MALAISE [None]
  - SINUS BRADYCARDIA [None]
  - HYPERKALAEMIA [None]
  - BACK INJURY [None]
  - FEMUR FRACTURE [None]
  - PROCEDURAL NAUSEA [None]
  - GASTRITIS [None]
  - TRICUSPID VALVE INCOMPETENCE [None]
  - TOOTH ABSCESS [None]
  - TACHYCARDIA [None]
  - LABYRINTHITIS [None]
  - GINGIVAL DISORDER [None]
  - CORONARY ARTERY DISEASE [None]
  - HYPOKALAEMIA [None]
  - SYNOVIAL CYST [None]
  - SENSITIVITY OF TEETH [None]
  - PRESYNCOPE [None]
  - PAIN IN EXTREMITY [None]
  - ROTATOR CUFF SYNDROME [None]
  - GINGIVAL BLEEDING [None]
  - INTERVERTEBRAL DISC DEGENERATION [None]
  - MUSCULOSKELETAL DISCOMFORT [None]
  - CLAVICLE FRACTURE [None]
  - GLUCOSE TOLERANCE IMPAIRED [None]
  - BREAST DISORDER [None]
  - CLINODACTYLY [None]
  - DENTAL CARIES [None]
  - HIATUS HERNIA [None]
  - CYST [None]
  - SPINAL OSTEOARTHRITIS [None]
